FAERS Safety Report 6304713-6 (Version None)
Quarter: 2009Q3

REPORT INFORMATION
  Report Type: 
  Country: None (occurrence: None)
  Receive Date: 20090811
  Receipt Date: 20090804
  Transmission Date: 20100115
  Serious: Yes (Other)
  Sender: FDA-Public Use
  Company Number: A0794692A

PATIENT
  Sex: Female

DRUGS (4)
  1. VENTOLIN [Suspect]
     Indication: ASTHMA
     Route: 055
  2. PROVENTIL-HFA [Suspect]
     Indication: ASTHMA
  3. PROAIR HFA [Suspect]
     Indication: ASTHMA
  4. XOPENEX [Suspect]
     Indication: ASTHMA

REACTIONS (7)
  - ASTHMA [None]
  - DRUG INEFFECTIVE [None]
  - DYSPNOEA [None]
  - NOCTURNAL DYSPNOEA [None]
  - PRODUCT QUALITY ISSUE [None]
  - THERMAL BURN [None]
  - WEIGHT INCREASED [None]
